FAERS Safety Report 21979942 (Version 1)
Quarter: 2023Q1

REPORT INFORMATION
  Report Type: Spontaneous
  Country: FR (occurrence: FR)
  Receive Date: 20230210
  Receipt Date: 20230210
  Transmission Date: 20230417
  Serious: Yes (Hospitalization)
  Sender: FDA-Public Use
  Company Number: None

PATIENT
  Age: 51 Year
  Sex: Male

DRUGS (4)
  1. OLANZAPINE [Suspect]
     Active Substance: OLANZAPINE
     Indication: Schizoaffective disorder
     Dosage: 30 MG, DAILY
     Route: 048
     Dates: end: 20221122
  2. QUETIAPINE [Suspect]
     Active Substance: QUETIAPINE
     Indication: Schizoaffective disorder
     Dosage: 800 MG, DAILY
     Route: 048
     Dates: end: 20221122
  3. HALOPERIDOL DECANOATE [Suspect]
     Active Substance: HALOPERIDOL DECANOATE
     Indication: Schizoaffective disorder
     Dosage: 5 MG, DAILY
     Route: 048
     Dates: start: 20221118, end: 20221122
  4. LOXAPINE SUCCINATE [Suspect]
     Active Substance: LOXAPINE SUCCINATE
     Indication: Schizoaffective disorder
     Dosage: UNK UNK, UNKNOWN
     Route: 048
     Dates: end: 20221122

REACTIONS (3)
  - Rhabdomyolysis [Recovering/Resolving]
  - Urinary retention [Recovering/Resolving]
  - Overdose [Unknown]

NARRATIVE: CASE EVENT DATE: 20221121
